FAERS Safety Report 21562811 (Version 1)
Quarter: 2022Q4

REPORT INFORMATION
  Report Type: Spontaneous
  Country: US (occurrence: None)
  Receive Date: 20221104
  Receipt Date: 20221104
  Transmission Date: 20230113
  Serious: Yes (Hospitalization)
  Sender: FDA-Public Use
  Company Number: None

PATIENT
  Sex: Female

DRUGS (10)
  1. MEKINIST [Suspect]
     Active Substance: TRAMETINIB DIMETHYL SULFOXIDE
     Indication: Malignant connective tissue neoplasm
     Dosage: FREQUENCY : DAILY;?
     Route: 048
     Dates: start: 20220727
  2. MEKINIST [Suspect]
     Active Substance: TRAMETINIB DIMETHYL SULFOXIDE
     Indication: Soft tissue sarcoma
  3. ALPRAZOLAM [Concomitant]
  4. CICLOPIROX [Concomitant]
  5. LEVOTHYROXIN [Concomitant]
  6. LOSARTAN POT [Concomitant]
  7. PREDNISONE [Concomitant]
  8. TACROLIMUS [Concomitant]
     Active Substance: TACROLIMUS
  9. TAFINLAR [Concomitant]
  10. ZOLPIDEM [Concomitant]
     Active Substance: ZOLPIDEM TARTRATE

REACTIONS (6)
  - Therapy interrupted [None]
  - Adverse drug reaction [None]
  - Chills [None]
  - Diarrhoea [None]
  - Vomiting [None]
  - Hypotension [None]
